FAERS Safety Report 4354412-5 (Version None)
Quarter: 2004Q2

REPORT INFORMATION
  Report Type: 
  Country: None (occurrence: None)
  Receive Date: 20040503
  Receipt Date: 20040426
  Transmission Date: 20050107
  Serious: Yes (Hospitalization)
  Sender: FDA-Public Use
  Company Number: 2004GB01012

PATIENT
  Age: 27 Year
  Sex: Male
  Weight: 73 kg

DRUGS (3)
  1. SEROQUEL [Suspect]
     Indication: SCHIZOAFFECTIVE DISORDER
     Dosage: 400 MG DAILY PO
     Route: 048
     Dates: start: 20040209, end: 20040316
  2. DIAZEPAM [Concomitant]
  3. CLOZAPINE [Concomitant]

REACTIONS (1)
  - NEUTROPENIA [None]
